FAERS Safety Report 7334896-0 (Version None)
Quarter: 2011Q1

REPORT INFORMATION
  Report Type: 
  Country: None (occurrence: None)
  Receive Date: 20110307
  Receipt Date: 20110228
  Transmission Date: 20110831
  Serious: Yes (Death)
  Sender: FDA-Public Use
  Company Number: ES-GENZYME-FLUD-1000772

PATIENT

DRUGS (5)
  1. MELPHALAN [Suspect]
     Indication: BONE MARROW CONDITIONING REGIMEN
     Dosage: UNK
     Route: 065
  2. CYCLOSPORINE [Concomitant]
     Indication: PROPHYLAXIS AGAINST GRAFT VERSUS HOST DISEASE
     Dosage: FROM DAY -7
     Route: 065
  3. ANTIINFECTIVES [Concomitant]
     Indication: INFECTION PROPHYLAXIS
     Dosage: DURING THE EARLY POST-TRANSPLANT PERIOD
     Route: 065
  4. FLUDARA [Suspect]
     Indication: BONE MARROW CONDITIONING REGIMEN
     Dosage: UNK
     Route: 065
  5. METHOTREXATE [Concomitant]
     Indication: PROPHYLAXIS AGAINST GRAFT VERSUS HOST DISEASE
     Dosage: 10 MG/M2, ON DAYS 1, 3, AND 6
     Route: 065

REACTIONS (2)
  - STEM CELL TRANSPLANT [None]
  - GRAFT VERSUS HOST DISEASE [None]
